FAERS Safety Report 15425483 (Version 4)
Quarter: 2018Q4

REPORT INFORMATION
  Report Type: Report from Study
  Country: CN (occurrence: CN)
  Receive Date: 20180925
  Receipt Date: 20181128
  Transmission Date: 20190204
  Serious: Yes (Hospitalization)
  Sender: FDA-Public Use
  Company Number: CN-SA-2018SA260599

PATIENT
  Age: 36 Year
  Sex: Female
  Weight: 46 kg

DRUGS (26)
  1. SEVELAMER CARBONATE. [Suspect]
     Active Substance: SEVELAMER CARBONATE
     Dosage: 2 UNK
     Route: 048
     Dates: start: 20180923, end: 20180923
  2. SEVELAMER CARBONATE. [Suspect]
     Active Substance: SEVELAMER CARBONATE
     Dosage: 1 DF, QD
     Route: 048
     Dates: start: 20180924, end: 20180924
  3. ESTAZOLAM. [Concomitant]
     Active Substance: ESTAZOLAM
     Indication: DYSSOMNIA
     Dosage: 1 MG, QD
     Route: 048
     Dates: start: 20180904, end: 20180913
  4. LACTULOSE. [Concomitant]
     Active Substance: LACTULOSE
     Dosage: 15 ML, QD
     Route: 048
     Dates: start: 2018
  5. SODIUM BICARBONATE. [Concomitant]
     Active Substance: SODIUM BICARBONATE
     Indication: METABOLIC ACIDOSIS
     Dosage: 1 G, TID
     Route: 048
     Dates: start: 20180724
  6. SEVELAMER CARBONATE. [Suspect]
     Active Substance: SEVELAMER CARBONATE
     Dosage: 4 DF
     Route: 048
     Dates: start: 20181010, end: 20181010
  7. POLYFEROSE [Concomitant]
     Active Substance: IRON
     Dosage: 0.15 G, QD
     Route: 048
     Dates: start: 20180724
  8. PHENOLPHTHALEIN [Concomitant]
     Active Substance: PHENOLPHTHALEIN
     Indication: CONSTIPATION
     Dosage: 1 G, QD
     Route: 048
     Dates: start: 20180803, end: 20180912
  9. SEVELAMER CARBONATE. [Suspect]
     Active Substance: SEVELAMER CARBONATE
     Dosage: 2 UNK
     Route: 048
     Dates: start: 20180918, end: 20180918
  10. SEVELAMER CARBONATE. [Suspect]
     Active Substance: SEVELAMER CARBONATE
     Dosage: 2 UNK
     Route: 048
     Dates: start: 20180921, end: 20180921
  11. SEVELAMER CARBONATE. [Suspect]
     Active Substance: SEVELAMER CARBONATE
     Dosage: 2 DF
     Route: 048
     Dates: start: 20180925, end: 20180925
  12. SEVELAMER CARBONATE. [Suspect]
     Active Substance: SEVELAMER CARBONATE
     Dosage: 6 DF
     Route: 048
     Dates: start: 20181011, end: 20181011
  13. NIFEDIPINE. [Concomitant]
     Active Substance: NIFEDIPINE
     Dosage: 30 MG, QD
     Route: 048
     Dates: start: 20180723
  14. SEVELAMER CARBONATE. [Suspect]
     Active Substance: SEVELAMER CARBONATE
     Dosage: 1 UNK
     Route: 048
     Dates: start: 20180914, end: 20180914
  15. SEVELAMER CARBONATE. [Suspect]
     Active Substance: SEVELAMER CARBONATE
     Dosage: 72 DF
     Route: 048
     Dates: start: 20180928, end: 20181009
  16. VALSARTAN. [Concomitant]
     Active Substance: VALSARTAN
     Dosage: 80 MG, QD
     Route: 048
     Dates: start: 20180723, end: 20180908
  17. LACTULOSE. [Concomitant]
     Active Substance: LACTULOSE
     Indication: CONSTIPATION
     Dosage: 15 ML, QD
     Route: 048
     Dates: start: 20180912, end: 20180913
  18. ERYTHROPOIETIN HUMAN [Concomitant]
     Active Substance: ERYTHROPOIETIN
     Dosage: 6000 IU; TWICE WEEKLY
     Route: 030
     Dates: start: 20180912
  19. SEVELAMER CARBONATE. [Suspect]
     Active Substance: SEVELAMER CARBONATE
     Dosage: 3 UNK
     Route: 048
     Dates: start: 20180922, end: 20180922
  20. SEVELAMER CARBONATE. [Suspect]
     Active Substance: SEVELAMER CARBONATE
     Dosage: 6 DF
     Route: 048
     Dates: start: 20180926, end: 20180927
  21. SEVELAMER CARBONATE. [Suspect]
     Active Substance: SEVELAMER CARBONATE
     Dosage: 54 DF
     Route: 048
     Dates: start: 20181012, end: 20181020
  22. ERYTHROPOIETIN HUMAN [Concomitant]
     Active Substance: ERYTHROPOIETIN
     Indication: NEPHROGENIC ANAEMIA
     Dosage: UNK UNK, 1X
     Route: 048
     Dates: start: 20180904, end: 20180904
  23. CALCITRIOL. [Concomitant]
     Active Substance: CALCITRIOL
     Indication: VITAMIN D DEFICIENCY
     Dosage: 0.25 UG, QD
     Route: 048
     Dates: start: 20180724, end: 20180905
  24. SEVELAMER CARBONATE. [Suspect]
     Active Substance: SEVELAMER CARBONATE
     Indication: HYPERPHOSPHATAEMIA
     Dosage: UNK UNK, UNK
     Route: 048
     Dates: start: 20180912, end: 20180912
  25. SEVELAMER CARBONATE. [Suspect]
     Active Substance: SEVELAMER CARBONATE
     Dosage: 6 UNK
     Route: 048
     Dates: start: 20180919, end: 20180920
  26. NIAO DU QING KE LI [Concomitant]
     Indication: CHRONIC KIDNEY DISEASE
     Dosage: 10 G, TID
     Route: 048
     Dates: start: 20180723

REACTIONS (2)
  - Cholecystitis acute [Recovered/Resolved]
  - Cholelithiasis [Recovered/Resolved]

NARRATIVE: CASE EVENT DATE: 20180913
